FAERS Safety Report 10100614 (Version 1)
Quarter: 2014Q2

REPORT INFORMATION
  Report Type: Spontaneous
  Country: BE (occurrence: BE)
  Receive Date: 20140423
  Receipt Date: 20140423
  Transmission Date: 20141212
  Serious: Yes (Other)
  Sender: FDA-Public Use
  Company Number: PHHY2014BE049129

PATIENT
  Age: 85 Year
  Sex: Female
  Weight: 60 kg

DRUGS (4)
  1. ACLASTA [Suspect]
     Indication: OSTEOPOROSIS
     Dosage: 5 MG, ONCE/SINGLE
     Route: 042
     Dates: start: 20140201
  2. LOSARTAN [Concomitant]
     Dosage: 50 MG, QD
  3. ASAFLOW [Concomitant]
     Dosage: 80 MG, QD
  4. STEOVIT D3 [Concomitant]
     Indication: OSTEOPOROSIS
     Dosage: 1000 MG, QD

REACTIONS (4)
  - Decreased appetite [Recovered/Resolved with Sequelae]
  - Tremor [Recovered/Resolved with Sequelae]
  - Hyperhidrosis [Recovered/Resolved with Sequelae]
  - Musculoskeletal stiffness [Recovered/Resolved with Sequelae]
